FAERS Safety Report 19364030 (Version 3)
Quarter: 2021Q3

REPORT INFORMATION
  Report Type: Spontaneous
  Country: CA (occurrence: CA)
  Receive Date: 20210603
  Receipt Date: 20210811
  Transmission Date: 20211014
  Serious: Yes (Other)
  Sender: FDA-Public Use
  Company Number: CA-JNJFOC-20210238912

PATIENT
  Age: 61 Year
  Sex: Female

DRUGS (1)
  1. ELMIRON [Suspect]
     Active Substance: PENTOSAN POLYSULFATE SODIUM
     Indication: CYSTITIS INTERSTITIAL
     Dosage: PATIENT HAD BEEN ON PENTOSAN POLYSULFATE SODIUM FOR APPROXIMATELY 15 YEARS
     Route: 048
     Dates: end: 202008

REACTIONS (3)
  - Maculopathy [Unknown]
  - Macular pigmentation [Unknown]
  - Retinal toxicity [Unknown]

NARRATIVE: CASE EVENT DATE: 2019
